FAERS Safety Report 6527715-3 (Version None)
Quarter: 2010Q1

REPORT INFORMATION
  Report Type: 
  Country: None (occurrence: None)
  Receive Date: 20100106
  Receipt Date: 20091229
  Transmission Date: 20100710
  Serious: Yes (Hospitalization)
  Sender: FDA-Public Use
  Company Number: FR-BIOGENIDEC-2009BI042230

PATIENT
  Age: 48 Year
  Sex: Male

DRUGS (4)
  1. TYSABRI [Suspect]
     Indication: MULTIPLE SCLEROSIS
     Route: 042
     Dates: start: 20070702
  2. GABAPENTIN [Concomitant]
     Indication: TRIGEMINAL NEURALGIA
     Route: 048
  3. AMITRIPTILIN [Concomitant]
     Indication: TRIGEMINAL NEURALGIA
     Route: 048
  4. CLONAZEPAM [Concomitant]
     Route: 048
     Dates: end: 20090929

REACTIONS (1)
  - TRIGEMINAL NEURALGIA [None]
